FAERS Safety Report 8817364 (Version 6)
Quarter: 2015Q2

REPORT INFORMATION
  Report Type: Report from Study
  Country: JP (occurrence: JP)
  Receive Date: 20121001
  Receipt Date: 20150408
  Transmission Date: 20150821
  Serious: Yes (Other)
  Sender: FDA-Public Use
  Company Number: JP-ASTELLAS-2011JP001215

PATIENT
  Age: 41 Year
  Sex: Female
  Weight: 63 kg

DRUGS (62)
  1. GASMOTIN [Concomitant]
     Active Substance: MOSAPRIDE CITRATE
     Indication: ENTEROCOLITIS
     Route: 048
     Dates: start: 20120621, end: 20120802
  2. MEIACT [Concomitant]
     Active Substance: CEFDITOREN PIVOXIL
     Route: 048
     Dates: start: 20130128, end: 20130202
  3. CRAVIT [Concomitant]
     Active Substance: LEVOFLOXACIN
     Indication: ARTHRITIS
     Route: 048
     Dates: start: 20091204, end: 20091210
  4. CRAVIT [Concomitant]
     Active Substance: LEVOFLOXACIN
     Indication: NASOPHARYNGITIS
     Route: 048
     Dates: start: 20120510, end: 20120514
  5. ADOAIR [Concomitant]
     Active Substance: FLUTICASONE PROPIONATE\SALMETEROL XINAFOATE
     Dosage: UNK UNK, UNKNOWN FREQ.
     Route: 055
     Dates: start: 20120802
  6. PREDNISOLONE. [Suspect]
     Active Substance: PREDNISOLONE
     Route: 048
     Dates: start: 20101228, end: 20110307
  7. THEOLONG [Concomitant]
     Active Substance: THEOPHYLLINE ANHYDROUS
     Route: 048
     Dates: start: 20130128
  8. DEPAS [Concomitant]
     Active Substance: ETIZOLAM
     Indication: INSOMNIA
     Dosage: 0.5 MG, ONCE DAILY
     Route: 048
     Dates: start: 20090126, end: 20090525
  9. TERNELIN [Concomitant]
     Active Substance: TIZANIDINE
     Indication: MUSCULOSKELETAL STIFFNESS
     Route: 048
     Dates: start: 20090409
  10. MUCODYNE [Concomitant]
     Active Substance: CARBOCYSTEINE
     Indication: BRONCHITIS
     Route: 048
     Dates: start: 20100125, end: 20100131
  11. PREDNISOLONE. [Suspect]
     Active Substance: PREDNISOLONE
     Route: 048
     Dates: start: 20110308, end: 20130304
  12. PREDNISOLONE. [Suspect]
     Active Substance: PREDNISOLONE
     Route: 048
     Dates: start: 20130903
  13. IMURAN [Concomitant]
     Active Substance: AZATHIOPRINE
     Indication: LUPUS NEPHRITIS
     Route: 048
     Dates: start: 20101227, end: 20110307
  14. IMURAN [Concomitant]
     Active Substance: AZATHIOPRINE
     Route: 048
     Dates: start: 20111115
  15. TERNELIN [Concomitant]
     Active Substance: TIZANIDINE
     Indication: HEADACHE
     Route: 048
     Dates: end: 20090525
  16. TRANSAMIN [Concomitant]
     Active Substance: TRANEXAMIC ACID
     Indication: NASOPHARYNGITIS
     Route: 048
     Dates: start: 20120510, end: 20120516
  17. BIOFERMIN                          /01617201/ [Concomitant]
     Active Substance: BACILLUS SUBTILIS\LACTOBACILLUS ACIDOPHILUS\STREPTOCOCCUS FAECAIS
     Indication: ENTEROCOLITIS
     Route: 048
     Dates: start: 20120621, end: 20120802
  18. MEIACT [Concomitant]
     Active Substance: CEFDITOREN PIVOXIL
     Indication: BRONCHITIS
     Route: 048
     Dates: start: 20120802, end: 20120806
  19. FLAVITAN [Concomitant]
     Active Substance: FLAVIN ADENINE DINUCLEOTIDE
     Indication: STOMATITIS
     Route: 048
     Dates: start: 20090309, end: 20090709
  20. FLAVITAN [Concomitant]
     Active Substance: FLAVIN ADENINE DINUCLEOTIDE
     Indication: CHEILITIS
     Route: 048
     Dates: start: 20121210, end: 20121223
  21. FOSAMAX [Concomitant]
     Active Substance: ALENDRONATE SODIUM
     Indication: PROPHYLAXIS
     Route: 048
  22. FOSAMAX [Concomitant]
     Active Substance: ALENDRONATE SODIUM
     Indication: PROPHYLAXIS
     Route: 048
     Dates: end: 20130827
  23. LOXONIN [Concomitant]
     Active Substance: LOXOPROFEN SODIUM
     Indication: SLE ARTHRITIS
     Route: 048
     Dates: start: 20080728
  24. LOXONIN [Concomitant]
     Active Substance: LOXOPROFEN SODIUM
     Indication: ARTHRALGIA
  25. PL [Concomitant]
     Active Substance: ACETAMINOPHEN\CAFFEINE\PROMETHAZINE\SALICYLAMIDE
     Indication: NASOPHARYNGITIS
     Route: 048
     Dates: start: 20100927, end: 20100930
  26. JANUVIA [Concomitant]
     Active Substance: SITAGLIPTIN PHOSPHATE
     Route: 048
     Dates: start: 20140303
  27. BIO-THREE [Concomitant]
     Active Substance: HERBALS
     Indication: ENTEROCOLITIS
     Route: 048
     Dates: start: 20130422, end: 20130501
  28. ALLEGRA [Concomitant]
     Active Substance: FEXOFENADINE HYDROCHLORIDE
     Indication: PRURITUS
     Dosage: UNK UNK, UNKNOWN FREQ.
     Route: 065
  29. TACROLIMUS. [Suspect]
     Active Substance: TACROLIMUS
     Indication: LUPUS NEPHRITIS
     Route: 048
     Dates: start: 20080403
  30. PREDNISOLONE. [Suspect]
     Active Substance: PREDNISOLONE
     Route: 048
     Dates: start: 20100928, end: 20101227
  31. IMURAN [Concomitant]
     Active Substance: AZATHIOPRINE
     Route: 048
     Dates: start: 20110308, end: 20110606
  32. MUCOSTA [Concomitant]
     Active Substance: REBAMIPIDE
     Indication: PROPHYLAXIS
     Route: 048
     Dates: end: 20111113
  33. LOXONIN [Concomitant]
     Active Substance: LOXOPROFEN SODIUM
     Indication: HEADACHE
     Route: 048
     Dates: end: 20080727
  34. JANUVIA [Concomitant]
     Active Substance: SITAGLIPTIN PHOSPHATE
     Indication: DIABETES MELLITUS
     Route: 048
     Dates: start: 20110404, end: 20110704
  35. JANUVIA [Concomitant]
     Active Substance: SITAGLIPTIN PHOSPHATE
     Route: 048
     Dates: start: 20130305, end: 20131127
  36. KAKKONTO [Concomitant]
     Active Substance: HERBALS
     Indication: NASOPHARYNGITIS
     Route: 048
     Dates: start: 20111114, end: 20111117
  37. ORADOL                             /00093302/ [Concomitant]
     Indication: NASOPHARYNGITIS
     Dosage: UNK, UNKNOWN FREQ.
     Route: 061
     Dates: start: 20120520, end: 20120526
  38. MIYA-BM [Concomitant]
     Active Substance: CLOSTRIDIUM BUTYRICUM SPORES STRAIN M-55
     Indication: ENTEROCOLITIS
     Route: 048
     Dates: start: 20131017, end: 20131127
  39. PREDNISOLONE. [Suspect]
     Active Substance: PREDNISOLONE
     Route: 048
     Dates: start: 20090908, end: 20100927
  40. PREDNISOLONE. [Suspect]
     Active Substance: PREDNISOLONE
     Route: 048
     Dates: start: 20130604, end: 20130902
  41. SALCOAT [Concomitant]
     Active Substance: BECLOMETHASONE DIPROPIONATE
     Indication: STOMATITIS
     Dosage: UNK, UNKNOWN FREQ.
     Route: 061
     Dates: start: 20121004, end: 20121023
  42. HOKUNALIN [Concomitant]
     Active Substance: TULOBUTEROL
     Indication: ASTHMA
     Route: 062
     Dates: start: 20090525, end: 20120226
  43. LOXONIN [Concomitant]
     Active Substance: LOXOPROFEN SODIUM
     Indication: ARTHRITIS
  44. RESPLEN [Concomitant]
     Active Substance: EPRAZINONE
     Indication: BRONCHITIS
     Route: 048
     Dates: start: 20100125, end: 20100131
  45. HIBON [Concomitant]
     Active Substance: RIBOFLAVIN
     Indication: GLOSSITIS
     Route: 048
     Dates: start: 20101122, end: 20110201
  46. PROMAC                             /00024401/ [Concomitant]
     Active Substance: NITROFURANTOIN
     Indication: PROPHYLAXIS AGAINST GASTROINTESTINAL ULCER
     Route: 048
     Dates: start: 20111114
  47. MYCOSYST [Concomitant]
     Active Substance: FLUCONAZOLE
     Indication: OESOPHAGEAL CANDIDIASIS
     Route: 048
     Dates: start: 20130919, end: 20131002
  48. TENELIA [Concomitant]
     Active Substance: CITALOPRAM HYDROBROMIDE
     Indication: PROPHYLAXIS
     Route: 048
     Dates: start: 20131128, end: 20140302
  49. IMURAN [Concomitant]
     Active Substance: AZATHIOPRINE
     Route: 048
     Dates: start: 20110607, end: 20111114
  50. TAKEPRON [Concomitant]
     Active Substance: LANSOPRAZOLE
     Indication: PROPHYLAXIS
     Route: 048
     Dates: end: 20131017
  51. TRYPTANOL                          /00002202/ [Concomitant]
     Active Substance: AMITRIPTYLINE
     Route: 048
     Dates: start: 20120829, end: 20130127
  52. ADOAIR [Concomitant]
     Active Substance: FLUTICASONE PROPIONATE\SALMETEROL XINAFOATE
     Indication: ASTHMA
     Dosage: UNK UNK, UNKNOWN FREQ.
     Route: 055
     Dates: start: 20090525
  53. ZITHROMAC [Concomitant]
     Active Substance: AZITHROMYCIN DIHYDRATE
     Indication: BRONCHITIS
     Route: 048
     Dates: start: 20100125, end: 20100127
  54. MUCODYNE [Concomitant]
     Active Substance: CARBOCYSTEINE
     Route: 048
     Dates: start: 20130128, end: 20130210
  55. JANUVIA [Concomitant]
     Active Substance: SITAGLIPTIN PHOSPHATE
     Route: 048
     Dates: start: 20110705, end: 20130304
  56. PREDNISOLONE. [Suspect]
     Active Substance: PREDNISOLONE
     Indication: LUPUS NEPHRITIS
     Route: 048
     Dates: end: 20090907
  57. PREDNISOLONE. [Suspect]
     Active Substance: PREDNISOLONE
     Route: 048
     Dates: start: 20130305, end: 20130603
  58. TRYPTANOL                          /00002202/ [Concomitant]
     Active Substance: AMITRIPTYLINE
     Indication: HEADACHE
     Route: 048
     Dates: start: 20120815, end: 20120828
  59. THEOLONG [Concomitant]
     Active Substance: THEOPHYLLINE ANHYDROUS
     Indication: ASTHMA
     Route: 048
     Dates: start: 20120802, end: 20130127
  60. TERNELIN [Concomitant]
     Active Substance: TIZANIDINE
     Indication: CERVICOBRACHIAL SYNDROME
     Route: 048
     Dates: start: 20140303
  61. ARTIST [Concomitant]
     Active Substance: CARVEDILOL
     Indication: BLOOD PRESSURE INCREASED
     Route: 048
     Dates: start: 20130325
  62. BIO-THREE [Concomitant]
     Active Substance: HERBALS
     Route: 048
     Dates: start: 20130603, end: 20130612

REACTIONS (17)
  - Headache [Recovering/Resolving]
  - Asthma [Recovering/Resolving]
  - Pruritus [Recovering/Resolving]
  - Arthritis [Recovering/Resolving]
  - Insomnia [Recovering/Resolving]
  - Abdominal distension [Recovering/Resolving]
  - Glossitis [Recovering/Resolving]
  - Blood pressure increased [Recovering/Resolving]
  - Enterocolitis [Recovering/Resolving]
  - Oesophageal candidiasis [Recovering/Resolving]
  - Stomatitis [Recovering/Resolving]
  - Musculoskeletal stiffness [Recovering/Resolving]
  - Diabetes mellitus [Not Recovered/Not Resolved]
  - Bronchitis [Recovering/Resolving]
  - Cheilitis [Recovering/Resolving]
  - Cervicobrachial syndrome [Recovering/Resolving]
  - Nasopharyngitis [Recovered/Resolved]

NARRATIVE: CASE EVENT DATE: 200812
